FAERS Safety Report 10566376 (Version 2)
Quarter: 2014Q4

REPORT INFORMATION
  Report Type: Report from Study
  Country: CA (occurrence: CA)
  Receive Date: 20141105
  Receipt Date: 20141105
  Transmission Date: 20150529
  Serious: Yes (Death, Hospitalization, Other)
  Sender: FDA-Public Use
  Company Number: CA-BRISTOL-MYERS SQUIBB COMPANY-21252853

PATIENT
  Age: 79 Year
  Sex: Female

DRUGS (11)
  1. OMEGA-3 ACIDS [Concomitant]
     Active Substance: OMEGA-3 FATTY ACIDS
  2. ZOPICLONE [Concomitant]
     Active Substance: ZOPICLONE
  3. PERCOCET [Concomitant]
     Active Substance: ACETAMINOPHEN\OXYCODONE HYDROCHLORIDE
  4. FOLIC ACID. [Concomitant]
     Active Substance: FOLIC ACID
  5. ORENCIA [Suspect]
     Active Substance: ABATACEPT
     Indication: RHEUMATOID ARTHRITIS
     Dosage: LAST DOSE ON 26-AUG-2014.?EXP DATE: AUG-2016
     Route: 042
     Dates: start: 20130315
  6. VITAMIN D [Concomitant]
     Active Substance: CHOLECALCIFEROL
  7. GABAPENTIN. [Concomitant]
     Active Substance: GABAPENTIN
  8. LIPITOR [Concomitant]
     Active Substance: ATORVASTATIN CALCIUM
  9. METHOTREXATE [Concomitant]
     Active Substance: METHOTREXATE
  10. MULTIVITAMIN [Concomitant]
     Active Substance: VITAMINS
  11. ASPIRIN. [Concomitant]
     Active Substance: ASPIRIN

REACTIONS (1)
  - Pancreatic carcinoma metastatic [Fatal]
